FAERS Safety Report 18845219 (Version 1)
Quarter: 2021Q1

REPORT INFORMATION
  Report Type: Spontaneous
  Country: US (occurrence: US)
  Receive Date: 20210204
  Receipt Date: 20210204
  Transmission Date: 20210419
  Serious: Yes (Other)
  Sender: FDA-Public Use
  Company Number: None

PATIENT
  Sex: Female
  Weight: 66.6 kg

DRUGS (2)
  1. DICLOFENAC [Suspect]
     Active Substance: DICLOFENAC
     Indication: ARTHRITIS
     Dosage: ?          QUANTITY:1 TABLET(S);?
  2. DILT?XR 100 MG [Concomitant]

REACTIONS (3)
  - Eye haemorrhage [None]
  - Macular degeneration [None]
  - Hepatic enzyme increased [None]
